FAERS Safety Report 5422449-0 (Version None)
Quarter: 2007Q3

REPORT INFORMATION
  Report Type: 
  Country: None (occurrence: None)
  Receive Date: 20070822
  Receipt Date: 20070820
  Transmission Date: 20080115
  Serious: Yes (Hospitalization)
  Sender: FDA-Public Use
  Company Number: US-BRISTOL-MYERS SQUIBB COMPANY-13882824

PATIENT
  Age: 42 Year
  Sex: Female
  Weight: 110 kg

DRUGS (7)
  1. ORENCIA [Suspect]
     Indication: RHEUMATOID ARTHRITIS
     Dates: start: 20070815, end: 20070815
  2. FOLIC ACID [Concomitant]
  3. PLAQUENIL [Concomitant]
  4. ELAVIL [Concomitant]
  5. LORTAB [Concomitant]
     Dosage: LORTAB-5/500MG QID
  6. IRON [Concomitant]
  7. COLACE CAPS [Concomitant]

REACTIONS (2)
  - PHARYNGEAL OEDEMA [None]
  - VOMITING [None]
